FAERS Safety Report 8679557 (Version 2)
Quarter: 2016Q1

REPORT INFORMATION
  Report Type: Spontaneous
  Country: FR (occurrence: FR)
  Receive Date: 20120724
  Receipt Date: 20160214
  Transmission Date: 20160526
  Serious: Yes (Death, Hospitalization, Other)
  Sender: FDA-Public Use
  Company Number: FR-BRISTOL-MYERS SQUIBB COMPANY-16765554

PATIENT
  Age: 56 Year
  Sex: Male

DRUGS (4)
  1. GLUCOPHAGE [Suspect]
     Active Substance: METFORMIN HYDROCHLORIDE
     Indication: TYPE 2 DIABETES MELLITUS
     Dosage: 1000 MG, QD
     Route: 065
  2. JANUMET [Concomitant]
     Active Substance: METFORMIN HYDROCHLORIDE\SITAGLIPTIN PHOSPHATE
     Indication: PRODUCT USED FOR UNKNOWN INDICATION
     Dosage: DOSE:50MG/1000MG,2/D (1 IN THE MORNING AND 1 IN THE EVENING)
     Route: 065
  3. NIFLURIL [Suspect]
     Active Substance: MORNIFLUMATE
     Indication: ARTHRALGIA
     Dosage: HARD CAPSULES,FREQ:IF NECESSARLY
     Route: 048
     Dates: start: 201201
  4. CRESTOR [Concomitant]
     Active Substance: ROSUVASTATIN CALCIUM
     Indication: PRODUCT USED FOR UNKNOWN INDICATION
     Dosage: 5 MG, QD
     Route: 065

REACTIONS (5)
  - Shock haemorrhagic [Fatal]
  - Septic shock [Unknown]
  - Off label use [Unknown]
  - Oesophageal varices haemorrhage [Fatal]
  - Diabetic ketoacidosis [Unknown]

NARRATIVE: CASE EVENT DATE: 20120523
